FAERS Safety Report 4469060-6 (Version None)
Quarter: 2004Q4

REPORT INFORMATION
  Report Type: 
  Country: None (occurrence: None)
  Receive Date: 20041001
  Receipt Date: 20040920
  Transmission Date: 20050328
  Serious: Yes (Death, Hospitalization)
  Sender: FDA-Public Use
  Company Number: 2004234530PT

PATIENT
  Age: 4 Year
  Sex: Female
  Weight: 17 kg

DRUGS (11)
  1. SOLU-MEDROL [Suspect]
     Indication: JUVENILE ARTHRITIS
     Dosage: 1G/73M^2, IV
     Route: 042
     Dates: start: 20040325
  2. THALIDOMIDE(THALIDOMIDE) TABLET [Suspect]
     Indication: JUVENILE ARTHRITIS
     Dosage: 50 MG, QD, ORAL
     Route: 048
     Dates: start: 20040623
  3. METHOTREXATE [Suspect]
     Indication: JUVENILE ARTHRITIS
     Dosage: 10 MG, WEEKLY, SUBCUTANEOUS
     Route: 058
     Dates: start: 20040623
  4. CLAVUMOX (CLAVULANATE POTASSIUM, AMOXICILLIN) SUSPENSION, ORAL [Suspect]
     Dosage: 7 ML, TID, ORAL
     Route: 048
     Dates: start: 20040707, end: 20040727
  5. SANDIMMUE [Suspect]
     Indication: JUVENILE ARTHRITIS
     Dosage: 120 MG, QD, ORAL
     Route: 048
  6. PROXEN [Concomitant]
  7. NORVASC [Concomitant]
  8. LEUCOVORIN (FOLICNIC ACID) [Concomitant]
  9. CALCIUM WITH VITAMIN D (CALCIUM SODIUM LACTATE, CALCIUM PHOSPHATE, ERG [Concomitant]
  10. MALTOFER (FERRIC HYDROXIDE POLYMALTOSE COMPLEX) [Concomitant]
  11. NITROFURANTOIN [Concomitant]

REACTIONS (12)
  - BLOOD CREATININE INCREASED [None]
  - BLOOD GLUCOSE INCREASED [None]
  - BLOOD PHOSPHORUS INCREASED [None]
  - C-REACTIVE PROTEIN INCREASED [None]
  - CARDIO-RESPIRATORY ARREST [None]
  - CULTURE URINE POSITIVE [None]
  - GASTROENTERITIS [None]
  - HAEMOGLOBIN DECREASED [None]
  - NEUTROPHIL COUNT INCREASED [None]
  - PLATELET COUNT INCREASED [None]
  - PYREXIA [None]
  - WHITE BLOOD CELL COUNT DECREASED [None]
